FAERS Safety Report 21343099 (Version 1)
Quarter: 2022Q3

REPORT INFORMATION
  Report Type: Spontaneous
  Country: US (occurrence: None)
  Receive Date: 20220916
  Receipt Date: 20220916
  Transmission Date: 20221026
  Serious: Yes (Life-Threatening, Hospitalization)
  Sender: FDA-Public Use
  Company Number: None

PATIENT
  Age: 58 Year
  Sex: Female

DRUGS (1)
  1. METHOCARBAMOL [Suspect]
     Active Substance: METHOCARBAMOL
     Indication: Muscle spasms
     Dosage: FREQUENCY : ONCE;?
     Route: 048
     Dates: start: 20220813, end: 20220813

REACTIONS (4)
  - Angioedema [None]
  - Throat irritation [None]
  - Dyspnoea [None]
  - Tongue pruritus [None]

NARRATIVE: CASE EVENT DATE: 20220813
